FAERS Safety Report 8490056-1 (Version None)
Quarter: 2012Q3

REPORT INFORMATION
  Report Type: 
  Country: None (occurrence: None)
  Receive Date: 20120705
  Receipt Date: 20120628
  Transmission Date: 20120928
  Serious: Yes (Other)
  Sender: FDA-Public Use
  Company Number: CA-UCBSA-059224

PATIENT
  Age: 61 Year
  Sex: Female
  Weight: 150 kg

DRUGS (14)
  1. CIMZIA [Suspect]
     Dosage: MAINTENANCE DOSE
     Route: 058
     Dates: start: 20120605
  2. LEVOTHYROXINE SODIUM [Concomitant]
     Indication: HYPOTHYROIDISM
     Dosage: UNKNOWN DOSE
     Route: 048
  3. OMEPRAZOLE (PRISOLEC) [Concomitant]
     Indication: HIATUS HERNIA
     Route: 048
  4. RAMIPRIL [Concomitant]
     Indication: HYPERTENSION
     Dosage: UNKNOWN DOSE
     Route: 048
  5. VITAMIN D [Concomitant]
     Indication: SUPPLEMENTATION THERAPY
     Route: 048
  6. CALCIUM [Concomitant]
     Indication: SUPPLEMENTATION THERAPY
     Route: 048
  7. ASPIRIN [Concomitant]
     Indication: PAIN
     Route: 048
  8. CIMZIA [Suspect]
     Indication: RHEUMATOID ARTHRITIS
     Route: 058
     Dates: start: 20120424, end: 20120522
  9. VENTOLIN [Concomitant]
     Indication: ASTHMA
     Dosage: UNKNOWN DOSE
     Route: 055
  10. SEREVENT [Concomitant]
     Indication: ASTHMA
     Dosage: UNKNOWN DOSE
     Route: 055
  11. HERBAL HCL MED [Concomitant]
     Indication: HYPERCHOLESTEROLAEMIA
  12. QUERCETIN [Concomitant]
     Indication: SINUS DISORDER
     Route: 048
  13. ADALAT [Concomitant]
     Indication: HYPERTENSION
     Dosage: UNKNOWN DOSE
     Route: 048
  14. LASIX [Concomitant]
     Indication: SWELLING
     Dosage: UNKNOWN DOSE
     Route: 048

REACTIONS (1)
  - PSORIASIS [None]
